FAERS Safety Report 20966652 (Version 1)
Quarter: 2022Q2

REPORT INFORMATION
  Report Type: Spontaneous
  Country: US (occurrence: None)
  Receive Date: 20220614
  Receipt Date: 20220614
  Transmission Date: 20220720
  Serious: Yes (Hospitalization)
  Sender: FDA-Public Use
  Company Number: None

PATIENT
  Age: 84 Year
  Sex: Male
  Weight: 56 kg

DRUGS (18)
  1. NIVOLUMAB [Suspect]
     Active Substance: NIVOLUMAB
     Indication: Chordoma
     Dosage: OTHER FREQUENCY : Q4WEEKS;?
     Route: 042
     Dates: start: 20210609, end: 20210929
  2. RELATLIMAB [Suspect]
     Active Substance: RELATLIMAB
     Indication: Chordoma
     Dosage: OTHER FREQUENCY : Q4WEEKS;?
     Route: 042
     Dates: start: 20210609, end: 20210929
  3. ASCORBIC ACID [Concomitant]
     Active Substance: ASCORBIC ACID
  4. ATORVASTATIN [Concomitant]
     Active Substance: ATORVASTATIN
  5. VITAMIN D3 [Concomitant]
     Active Substance: CHOLECALCIFEROL
  6. CYANOCOBALAMIN [Concomitant]
     Active Substance: CYANOCOBALAMIN
  7. LEVOTHYROXINE [Concomitant]
     Active Substance: LEVOTHYROXINE
  8. PAROXETINE [Concomitant]
     Active Substance: PAROXETINE
  9. CINNAMON [Concomitant]
     Active Substance: CINNAMON
  10. FLAX SEED OIL [Concomitant]
  11. ASPIRIN EC [Concomitant]
  12. CALCIUM [Concomitant]
     Active Substance: CALCIUM
  13. COENZYME Q10 [Concomitant]
     Active Substance: DIETARY SUPPLEMENT\UBIDECARENONE
  14. FERROUS SULFATE [Concomitant]
     Active Substance: FERROUS SULFATE
  15. METOPROLOL SUCCINATE [Concomitant]
     Active Substance: METOPROLOL SUCCINATE
  16. PROBIOTICS NOS [Concomitant]
     Active Substance: PROBIOTICS NOS
  17. HERBALS\TURMERIC [Concomitant]
     Active Substance: HERBALS\TURMERIC
  18. CBD DROPS [Concomitant]

REACTIONS (2)
  - Electrocardiogram abnormal [None]
  - Myocarditis [None]

NARRATIVE: CASE EVENT DATE: 20211021
